FAERS Safety Report 8186707-1 (Version None)
Quarter: 2012Q1

REPORT INFORMATION
  Report Type: 
  Country: None (occurrence: None)
  Receive Date: 20120306
  Receipt Date: 20120227
  Transmission Date: 20120608
  Serious: Yes (Other)
  Sender: FDA-Public Use
  Company Number: US-ASTELLAS-2012US001790

PATIENT
  Sex: Male

DRUGS (4)
  1. VESICARE [Suspect]
     Indication: URGE INCONTINENCE
     Dosage: UNK MG, UNKNOWN/D
     Route: 048
     Dates: start: 20080501
  2. VESICARE [Suspect]
     Dosage: 5 MG, UID/QD
     Route: 048
  3. ENABLEX [Concomitant]
     Indication: PRODUCT USED FOR UNKNOWN INDICATION
     Dosage: UNK
     Route: 065
  4. VESICARE [Suspect]
     Dosage: 10 MG, UNKNOWN/D
     Route: 048

REACTIONS (3)
  - CARDIAC FAILURE CONGESTIVE [None]
  - RENAL ARTERY STENOSIS [None]
  - BENIGN PROSTATIC HYPERPLASIA [None]
